FAERS Safety Report 5387054-3 (Version None)
Quarter: 2007Q3

REPORT INFORMATION
  Report Type: 
  Country: None (occurrence: None)
  Receive Date: 20070713
  Receipt Date: 20070705
  Transmission Date: 20080115
  Serious: Yes (Other)
  Sender: FDA-Public Use
  Company Number: JP-ABBOTT-07P-087-0368990-00

PATIENT
  Sex: Female

DRUGS (2)
  1. FENOFIBRATE [Suspect]
     Indication: HYPERLIPIDAEMIA
     Route: 048
     Dates: start: 20070419, end: 20070509
  2. AMLODIPINE BESYLATE [Suspect]
     Indication: HYPERTENSION
     Route: 048
     Dates: start: 20021001

REACTIONS (4)
  - FATIGUE [None]
  - LIVER DISORDER [None]
  - NAUSEA [None]
  - TONGUE DISORDER [None]
